FAERS Safety Report 7092098-X (Version None)
Quarter: 2010Q4

REPORT INFORMATION
  Report Type: 
  Country: None (occurrence: None)
  Receive Date: 20101109
  Receipt Date: 20101028
  Transmission Date: 20110411
  Serious: Yes (Death)
  Sender: FDA-Public Use
  Company Number: US-ACTELION-A-US2009-27284

PATIENT
  Sex: Female

DRUGS (2)
  1. VENTAVIS [Suspect]
     Route: 055
  2. DIURETICS [Concomitant]

REACTIONS (5)
  - ANAEMIA [None]
  - HYPONATRAEMIA [None]
  - MULTI-ORGAN FAILURE [None]
  - PROTEINURIA [None]
  - SEPSIS [None]
